FAERS Safety Report 4914051-1 (Version None)
Quarter: 2006Q1

REPORT INFORMATION
  Report Type: 
  Country: None (occurrence: None)
  Receive Date: 20060206
  Receipt Date: 20060125
  Transmission Date: 20060701
  Serious: Yes (Other)
  Sender: FDA-Public Use
  Company Number: 2006BH001277

PATIENT
  Age: 39 Year
  Sex: Male

DRUGS (1)
  1. IMMUNE GLOBULIN INTRAVENOUS (HUMAN) [Suspect]
     Indication: NEUROMYOPATHY
     Dosage: 5 DAYS;IV
     Route: 042

REACTIONS (7)
  - COMPLEMENT FACTOR C4 DECREASED [None]
  - DERMATITIS EXFOLIATIVE [None]
  - DYSHIDROSIS [None]
  - ECZEMA [None]
  - INFUSION RELATED REACTION [None]
  - RASH [None]
  - SKIN LESION [None]
